FAERS Safety Report 13577187 (Version 3)
Quarter: 2017Q3

REPORT INFORMATION
  Report Type: Spontaneous
  Country: DE (occurrence: DE)
  Receive Date: 20170524
  Receipt Date: 20170726
  Transmission Date: 20171127
  Serious: Yes (Other)
  Sender: FDA-Public Use
  Company Number: DE-AMGEN-DEUSP2017063035

PATIENT
  Age: 53 Year
  Sex: Female
  Weight: 49 kg

DRUGS (6)
  1. NEUPOGEN [Suspect]
     Active Substance: FILGRASTIM
     Dosage: 30 MILLION UNIT, AFTER CHEMO (5 SYRINGES)
     Route: 058
     Dates: start: 20170201, end: 20170627
  2. TAXOL [Suspect]
     Active Substance: PACLITAXEL
     Indication: CERVIX CARCINOMA
     Dosage: UNK
     Route: 065
  3. EMEND [Concomitant]
     Active Substance: APREPITANT
     Dosage: UNK (125MG/80MG)
  4. CARBOPLATIN. [Suspect]
     Active Substance: CARBOPLATIN
     Indication: CERVIX CARCINOMA
     Dosage: UNK
     Route: 065
  5. NEULASTA [Suspect]
     Active Substance: PEGFILGRASTIM
     Indication: PRODUCT USED FOR UNKNOWN INDICATION
     Dosage: UNK
     Route: 065
     Dates: start: 2015, end: 2015
  6. NEUPOGEN [Suspect]
     Active Substance: FILGRASTIM
     Indication: CERVIX CARCINOMA
     Dosage: 30 MILLION UNIT, AFTER CHEMO (3 INJECTIONS)
     Route: 058
     Dates: start: 20160831

REACTIONS (4)
  - Respiratory tract infection [Recovered/Resolved]
  - Urinary tract infection [Recovered/Resolved]
  - Granulocytes abnormal [Recovered/Resolved]
  - Injection site pain [Recovered/Resolved]

NARRATIVE: CASE EVENT DATE: 20160930
